FAERS Safety Report 6164357-6 (Version None)
Quarter: 2009Q2

REPORT INFORMATION
  Report Type: 
  Country: None (occurrence: None)
  Receive Date: 20090420
  Receipt Date: 20090406
  Transmission Date: 20091009
  Serious: Yes (Other)
  Sender: FDA-Public Use
  Company Number: 09-041

PATIENT
  Age: 42 Year
  Sex: Male

DRUGS (5)
  1. CEFTRIAXONE [Suspect]
     Indication: WHIPPLE'S DISEASE
  2. SULFAMETHOXAZOLE AND TRIMETHOPRIM [Suspect]
     Indication: WHIPPLE'S DISEASE
  3. DOXYCYCLINE [Suspect]
     Indication: WHIPPLE'S DISEASE
  4. HYDROXYCHLOROQUINE SULFATE [Suspect]
     Indication: WHIPPLE'S DISEASE
  5. STREPTOMYCIN [Suspect]
     Indication: WHIPPLE'S DISEASE

REACTIONS (10)
  - DERMATITIS HERPETIFORMIS [None]
  - DISORDER OF ORBIT [None]
  - ERYTHEMA NODOSUM [None]
  - IMMUNE RECONSTITUTION SYNDROME [None]
  - INTERSTITIAL GRANULOMATOUS DERMATITIS [None]
  - LYMPHOEDEMA [None]
  - MASS [None]
  - PATHOGEN RESISTANCE [None]
  - SEPTAL PANNICULITIS [None]
  - SKIN PAPILLOMA [None]
